FAERS Safety Report 22941664 (Version 2)
Quarter: 2023Q4

REPORT INFORMATION
  Report Type: Spontaneous
  Country: US (occurrence: US)
  Receive Date: 20230914
  Receipt Date: 20231007
  Transmission Date: 20240109
  Serious: No
  Sender: FDA-Public Use
  Company Number: US-HETERO-HET2023US02613

PATIENT
  Sex: Female

DRUGS (2)
  1. LEVETIRACETAM [Suspect]
     Active Substance: LEVETIRACETAM
     Indication: Seizure
     Dosage: 1 DOSAGE FORM, B.I.D.
     Route: 065
     Dates: start: 20230627
  2. LEVETIRACETAM [Suspect]
     Active Substance: LEVETIRACETAM
     Dosage: ONE TABLET IN THE MORNING AND HALF A TABLET IN THE EVENING
     Route: 065
     Dates: start: 20230904

REACTIONS (10)
  - Stress [Unknown]
  - Dehydration [Unknown]
  - Antisocial behaviour [Unknown]
  - Feeling abnormal [Unknown]
  - Agitation [Unknown]
  - Somnolence [Unknown]
  - Aggression [Unknown]
  - Fatigue [Unknown]
  - Abnormal behaviour [Unknown]
  - Decreased appetite [Unknown]
